FAERS Safety Report 21251370 (Version 5)
Quarter: 2022Q4

REPORT INFORMATION
  Report Type: Report from Study
  Country: US (occurrence: US)
  Receive Date: 20220825
  Receipt Date: 20221107
  Transmission Date: 20230113
  Serious: Yes (Other)
  Sender: FDA-Public Use
  Company Number: US-BEH-2022148924

PATIENT
  Age: 35 Year
  Sex: Female
  Weight: 80.726 kg

DRUGS (6)
  1. HIZENTRA [Suspect]
     Active Substance: HUMAN IMMUNOGLOBULIN G
     Indication: Hypogammaglobulinaemia
     Dosage: 15 GRAM, QW
     Route: 058
     Dates: start: 20220811
  2. HIZENTRA [Suspect]
     Active Substance: HUMAN IMMUNOGLOBULIN G
     Indication: Selective IgA immunodeficiency
     Dosage: UNK
     Route: 058
     Dates: start: 20220811
  3. HIZENTRA [Suspect]
     Active Substance: HUMAN IMMUNOGLOBULIN G
     Indication: Primary immunodeficiency syndrome
     Dosage: UNK
     Route: 058
     Dates: start: 20220811
  4. HIZENTRA [Suspect]
     Active Substance: HUMAN IMMUNOGLOBULIN G
     Dosage: UNK
     Route: 058
     Dates: start: 20220819
  5. HIZENTRA [Suspect]
     Active Substance: HUMAN IMMUNOGLOBULIN G
     Dosage: 15 GRAM, QW
     Route: 058
     Dates: start: 20220818
  6. HIZENTRA [Suspect]
     Active Substance: HUMAN IMMUNOGLOBULIN G
     Dosage: 15 GRAM, QW
     Route: 058
     Dates: start: 20220811

REACTIONS (10)
  - Diarrhoea haemorrhagic [Recovering/Resolving]
  - Infusion site erythema [Recovering/Resolving]
  - Infusion site pain [Recovering/Resolving]
  - Mucous stools [Recovering/Resolving]
  - No adverse event [Recovered/Resolved]
  - Insurance issue [Recovered/Resolved]
  - Discomfort [Unknown]
  - Incorrect product administration duration [Unknown]
  - Fear of injection [Unknown]
  - Incorrect product administration duration [Unknown]

NARRATIVE: CASE EVENT DATE: 20220811
